FAERS Safety Report 6463747-1 (Version None)
Quarter: 2009Q4

REPORT INFORMATION
  Report Type: 
  Country: None (occurrence: None)
  Receive Date: 20091201
  Receipt Date: 20091120
  Transmission Date: 20100525
  Serious: Yes (Hospitalization)
  Sender: FDA-Public Use
  Company Number: US-JNJFOC-20091107583

PATIENT
  Sex: Female
  Weight: 90.72 kg

DRUGS (3)
  1. PREZISTA [Suspect]
     Indication: HIV INFECTION
     Route: 065
  2. NORVIR [Concomitant]
     Indication: HIV INFECTION
  3. COMBIVIR [Concomitant]
     Indication: HIV INFECTION

REACTIONS (2)
  - DRUG EXPOSURE DURING PREGNANCY [None]
  - IMMINENT ABORTION [None]
